FAERS Safety Report 12694027 (Version 1)
Quarter: 2016Q3

REPORT INFORMATION
  Report Type: Spontaneous
  Country: US (occurrence: US)
  Receive Date: 20160829
  Receipt Date: 20160829
  Transmission Date: 20161109
  Serious: No
  Sender: FDA-Public Use
  Company Number: US-JNJFOC-20160610318

PATIENT
  Age: 19 Year
  Sex: Female
  Weight: 49.9 kg

DRUGS (3)
  1. METHYLPHENIDATE HYDROCHLORIDE. [Suspect]
     Active Substance: METHYLPHENIDATE HYDROCHLORIDE
     Indication: ANXIETY
     Route: 048
     Dates: start: 20160523, end: 20160608
  2. LEXAPRO [Concomitant]
     Active Substance: ESCITALOPRAM OXALATE
     Indication: ANXIETY
     Route: 048
     Dates: start: 2015
  3. REXULTI [Concomitant]
     Active Substance: BREXPIPRAZOLE
     Indication: ANXIETY
     Route: 048
     Dates: start: 2015

REACTIONS (3)
  - Pruritus [Not Recovered/Not Resolved]
  - Product use issue [Unknown]
  - Off label use [Unknown]

NARRATIVE: CASE EVENT DATE: 20160523
